FAERS Safety Report 10039774 (Version 3)
Quarter: 2014Q2

REPORT INFORMATION
  Report Type: Spontaneous
  Country: FR (occurrence: FR)
  Receive Date: 20140326
  Receipt Date: 20140429
  Transmission Date: 20141212
  Serious: Yes (Life-Threatening, Hospitalization, Other)
  Sender: FDA-Public Use
  Company Number: FR-JNJFOC-20140308646

PATIENT
  Sex: Female
  Weight: 75 kg

DRUGS (7)
  1. XARELTO [Suspect]
     Indication: CEREBROVASCULAR ACCIDENT PROPHYLAXIS
     Route: 048
     Dates: end: 20140227
  2. XARELTO [Suspect]
     Indication: ARRHYTHMIA
     Route: 048
     Dates: end: 20140227
  3. XARELTO [Suspect]
     Indication: ATRIAL FIBRILLATION
     Route: 048
     Dates: end: 20140227
  4. ENALAPRIL/HCT [Concomitant]
     Dosage: 20 MG + 12.5 MG
     Route: 065
  5. CRESTOR [Concomitant]
     Route: 065
  6. LOXEN [Concomitant]
     Route: 065
  7. GLUCOSAMINE [Concomitant]
     Route: 065

REACTIONS (2)
  - Haemorrhagic stroke [Recovered/Resolved]
  - Confusional state [Recovered/Resolved]
